FAERS Safety Report 15705452 (Version 2)
Quarter: 2019Q1

REPORT INFORMATION
  Report Type: Report from Study
  Country: ZA (occurrence: ZA)
  Receive Date: 20181210
  Receipt Date: 20190204
  Transmission Date: 20190417
  Serious: Yes (Disabling)
  Sender: FDA-Public Use
  Company Number: ZA-SA-2018SA284001

PATIENT
  Age: 48 Year
  Sex: Male

DRUGS (7)
  1. DIAMICRON [Concomitant]
     Active Substance: GLICLAZIDE
     Dosage: 60 MG, BID
     Route: 065
     Dates: start: 20170101
  2. OPTISULIN (INSULIN GLARGINE) [Suspect]
     Active Substance: INSULIN GLARGINE
     Indication: TYPE 2 DIABETES MELLITUS
     Dosage: 38 IU, QD
     Dates: start: 20180701
  3. NO STUDY DRUG GIVEN [Suspect]
     Active Substance: UNSPECIFIED INGREDIENT
     Dosage: UNK
  4. ELTROXIN [Concomitant]
     Active Substance: LEVOTHYROXINE
     Dosage: 5 MG, QD
     Route: 065
     Dates: start: 20180101
  5. GALVUS [Concomitant]
     Active Substance: VILDAGLIPTIN
     Dosage: 8 MG, BID
     Route: 065
     Dates: start: 20160101
  6. OPTISULIN (INSULIN GLARGINE) [Suspect]
     Active Substance: INSULIN GLARGINE
     Dosage: 50 U, QD
     Route: 065
     Dates: start: 20180709
  7. AMTAS [AMLODIPINE BESILATE] [Concomitant]
     Dosage: 5 MG, QD
     Route: 065
     Dates: start: 20180101

REACTIONS (4)
  - Erectile dysfunction [Not Recovered/Not Resolved]
  - Sexual dysfunction [Not Recovered/Not Resolved]
  - Fatigue [Not Recovered/Not Resolved]
  - Weight increased [Not Recovered/Not Resolved]

NARRATIVE: CASE EVENT DATE: 20180715
